FAERS Safety Report 5823574-2 (Version None)
Quarter: 2008Q3

REPORT INFORMATION
  Report Type: 
  Country: None (occurrence: None)
  Receive Date: 20080725
  Receipt Date: 20080715
  Transmission Date: 20090109
  Serious: Yes (Hospitalization)
  Sender: FDA-Public Use
  Company Number: IT-PFIZER INC-2007026194

PATIENT
  Sex: Male
  Weight: 70 kg

DRUGS (7)
  1. SU-011,248 [Suspect]
     Indication: METASTATIC RENAL CELL CARCINOMA
     Route: 048
  2. SU-011,248 [Suspect]
     Indication: RENAL CANCER
  3. ATENOLOL [Concomitant]
     Route: 048
  4. ASPIRIN [Concomitant]
     Route: 048
  5. OMEPRAZOLE [Concomitant]
     Route: 048
  6. TAMSULOSIN HCL [Concomitant]
     Route: 048
     Dates: start: 19990101
  7. FINASTERIDE [Concomitant]
     Route: 048

REACTIONS (3)
  - BLOOD AMYLASE INCREASED [None]
  - LIPASE INCREASED [None]
  - MYOCARDIAL ISCHAEMIA [None]
